FAERS Safety Report 4600981-7 (Version None)
Quarter: 2005Q1

REPORT INFORMATION
  Report Type: 
  Country: None (occurrence: None)
  Receive Date: 20050307
  Receipt Date: 20050307
  Transmission Date: 20050727
  Serious: No
  Sender: FDA-Public Use
  Company Number: None

PATIENT
  Age: 72 Year
  Sex: Male
  Weight: 65.7716 kg

DRUGS (2)
  1. SIMVASTATIN [Suspect]
     Indication: HYPERLIPIDAEMIA
     Dosage: ORAL DAILY
     Route: 048
     Dates: start: 20050101, end: 20050106
  2. HYDROCHLOROTHIAZIDE [Concomitant]

REACTIONS (1)
  - BLISTER [None]
